FAERS Safety Report 24783077 (Version 1)
Quarter: 2024Q4

REPORT INFORMATION
  Report Type: Report from Study
  Country: BR (occurrence: BR)
  Receive Date: 20241227
  Receipt Date: 20241227
  Transmission Date: 20250115
  Serious: Yes (Hospitalization)
  Sender: TAKEDA
  Company Number: BR-TAKEDA-2024TUS127270

PATIENT
  Age: 31 Year
  Sex: Female

DRUGS (1)
  1. HUMAN IMMUNOGLOBULIN G\HYALURONIDASE RECOMBINANT HUMAN [Suspect]
     Active Substance: HUMAN IMMUNOGLOBULIN G\HYALURONIDASE (HUMAN RECOMBINANT)
     Indication: Primary immunodeficiency syndrome
     Dosage: 30 GRAM, Q4WEEKS
     Dates: start: 202310

REACTIONS (5)
  - Skin infection [Recovered/Resolved]
  - Eye injury [Unknown]
  - Drug administered in wrong device [Unknown]
  - Inappropriate schedule of product administration [Unknown]
  - Wound [Unknown]

NARRATIVE: CASE EVENT DATE: 20231001
